FAERS Safety Report 5740921-0 (Version None)
Quarter: 2008Q2

REPORT INFORMATION
  Report Type: 
  Country: None (occurrence: None)
  Receive Date: 20080515
  Receipt Date: 20080313
  Transmission Date: 20081010
  Serious: No
  Sender: FDA-Public Use
  Company Number: WAES 0803USA02217

PATIENT
  Age: 57 Year
  Sex: Male

DRUGS (2)
  1. ISENTRESS [Suspect]
     Indication: HIV INFECTION
     Dosage: 1 TAB/BID/PO
     Route: 048
  2. ZITHROMAX [Concomitant]

REACTIONS (2)
  - FACE OEDEMA [None]
  - SWELLING [None]
